FAERS Safety Report 7650752-2 (Version None)
Quarter: 2011Q3

REPORT INFORMATION
  Report Type: 
  Country: None (occurrence: None)
  Receive Date: 20110802
  Receipt Date: 20110728
  Transmission Date: 20111222
  Serious: Yes (Hospitalization, Disabling)
  Sender: FDA-Public Use
  Company Number: PT-PFIZER INC-2011172814

PATIENT
  Age: 85 Year
  Sex: Female
  Weight: 75 kg

DRUGS (14)
  1. BETAHISTINE [Concomitant]
     Dosage: UNK
  2. RELMUS [Concomitant]
     Dosage: UNK
  3. ZURIM [Concomitant]
     Dosage: UNK
  4. TRAUSAN [Concomitant]
     Dosage: 100 MG, UNK
  5. MONOKET [Concomitant]
     Dosage: 20 MG, UNK
  6. ASPIRIN [Concomitant]
     Dosage: UNK
  7. TOLVON [Concomitant]
     Dosage: 30 MG, UNK
  8. INDAPAMIDE [Concomitant]
     Dosage: UNK
  9. ASCORBIC ACID/HESPERIDIN METHYL CHALCONE/RUSCUS ACULEATUS [Concomitant]
     Dosage: UNK
  10. PANTOPRAZOLE [Concomitant]
     Dosage: UNK
  11. BUDESONIDE [Concomitant]
     Dosage: UNK
  12. LYRICA [Suspect]
     Indication: CARPAL TUNNEL SYNDROME
     Dosage: 75 MG, 2X/DAY
     Route: 048
     Dates: start: 20110314, end: 20110727
  13. VALSARTAN [Concomitant]
     Dosage: UNK
  14. XANAX [Concomitant]
     Dosage: UNK

REACTIONS (2)
  - ANAEMIA MEGALOBLASTIC [None]
  - VITAMIN B12 DEFICIENCY [None]
